FAERS Safety Report 8598381-0 (Version None)
Quarter: 2012Q3

REPORT INFORMATION
  Report Type: 
  Country: None (occurrence: None)
  Receive Date: 20120816
  Receipt Date: 20120815
  Transmission Date: 20120928
  Serious: Yes (Other)
  Sender: FDA-Public Use
  Company Number: US-PFIZER INC-2012199950

PATIENT
  Age: 32 Year
  Sex: Female
  Weight: 95.238 kg

DRUGS (2)
  1. EFFEXOR XR [Suspect]
     Indication: DEPRESSION
     Dosage: 150 MG, 1X/DAY
     Route: 048
  2. EFFEXOR XR [Suspect]
     Indication: BIPOLAR DISORDER
     Dosage: 75 MG, 1X/DAY
     Route: 048

REACTIONS (6)
  - MUSCLE TWITCHING [None]
  - ABNORMAL BEHAVIOUR [None]
  - BIPOLAR I DISORDER [None]
  - TREMOR [None]
  - PARAESTHESIA [None]
  - DRUG INEFFECTIVE [None]
